FAERS Safety Report 7760005-X (Version None)
Quarter: 2011Q3

REPORT INFORMATION
  Report Type: 
  Country: None (occurrence: None)
  Receive Date: 20110919
  Receipt Date: 20110907
  Transmission Date: 20111222
  Serious: Yes (Hospitalization, Other)
  Sender: FDA-Public Use
  Company Number: US-BAYER-200840433NA

PATIENT
  Sex: Female

DRUGS (1)
  1. MIRENA [Suspect]
     Indication: MENOMETRORRHAGIA
     Dosage: 20 ?G, CONT
     Route: 015
     Dates: start: 20080811, end: 20080822

REACTIONS (15)
  - ENDOMETRITIS [None]
  - MALAISE [None]
  - DEVICE RELATED INFECTION [None]
  - SEPSIS [None]
  - PELVIC ABSCESS [None]
  - PELVIC PAIN [None]
  - ABDOMINAL PAIN [None]
  - NAUSEA [None]
  - STREPTOCOCCUS TEST POSITIVE [None]
  - GARDNERELLA TEST POSITIVE [None]
  - PYREXIA [None]
  - SALPINGITIS [None]
  - CHILLS [None]
  - PELVIC INFLAMMATORY DISEASE [None]
  - DIARRHOEA [None]
